FAERS Safety Report 18947413 (Version 1)
Quarter: 2021Q1

REPORT INFORMATION
  Report Type: Spontaneous
  Country: DK (occurrence: DK)
  Receive Date: 20210226
  Receipt Date: 20210226
  Transmission Date: 20210420
  Serious: Yes (Other)
  Sender: FDA-Public Use
  Company Number: DK-009507513-2102NOR009279

PATIENT
  Sex: Female

DRUGS (2)
  1. JANUVIA [Suspect]
     Active Substance: SITAGLIPTIN PHOSPHATE
     Indication: TYPE 2 DIABETES MELLITUS
     Dosage: UNK
     Route: 048
     Dates: start: 20201112, end: 20201203
  2. JANUVIA [Suspect]
     Active Substance: SITAGLIPTIN PHOSPHATE
     Dosage: 100 MG/DAILY
     Route: 048
     Dates: start: 20210213

REACTIONS (10)
  - Dysuria [Unknown]
  - Confusional state [Unknown]
  - Urinary retention [Unknown]
  - COVID-19 [Unknown]
  - Nasopharyngitis [Unknown]
  - Oral mucosal blistering [Unknown]
  - Constipation [Unknown]
  - Abdominal pain upper [Unknown]
  - Vision blurred [Unknown]
  - Headache [Unknown]

NARRATIVE: CASE EVENT DATE: 2020
